FAERS Safety Report 20089913 (Version 1)
Quarter: 2021Q4

REPORT INFORMATION
  Report Type: Spontaneous
  Country: US (occurrence: None)
  Receive Date: 20211118
  Receipt Date: 20211118
  Transmission Date: 20220303
  Serious: No
  Sender: FDA-Public Use
  Company Number: None

PATIENT
  Age: 47 Year
  Sex: Female

DRUGS (1)
  1. OPSUMIT [Suspect]
     Active Substance: MACITENTAN
     Indication: Pulmonary arterial hypertension
     Dosage: FREQUENCY : DAILY;?
     Route: 048
     Dates: start: 20180611

REACTIONS (5)
  - Syncope [None]
  - Hypervolaemia [None]
  - Oedema [None]
  - Jugular vein distension [None]
  - Pulmonary hypertension [None]

NARRATIVE: CASE EVENT DATE: 20211117
